FAERS Safety Report 5513190-4 (Version None)
Quarter: 2007Q4

REPORT INFORMATION
  Report Type: 
  Country: None (occurrence: None)
  Receive Date: 20071112
  Receipt Date: 20061218
  Transmission Date: 20080405
  Serious: No
  Sender: FDA-Public Use
  Company Number: US-BRISTOL-MYERS SQUIBB COMPANY-13616164

PATIENT
  Age: 55 Year
  Sex: Male
  Weight: 84 kg

DRUGS (5)
  1. SUSTIVA [Suspect]
     Indication: HIV INFECTION
     Route: 048
     Dates: start: 20060403
  2. EPZICOM [Concomitant]
  3. LIPITOR [Concomitant]
  4. MULTI-VITAMIN [Concomitant]
  5. ADVIL [Concomitant]

REACTIONS (3)
  - ABNORMAL DREAMS [None]
  - BLOOD PRESSURE INCREASED [None]
  - DIZZINESS [None]
